FAERS Safety Report 17797240 (Version 2)
Quarter: 2020Q2

REPORT INFORMATION
  Report Type: Spontaneous
  Country: JP (occurrence: JP)
  Receive Date: 20200518
  Receipt Date: 20200525
  Transmission Date: 20200714
  Serious: Yes (Other)
  Sender: FDA-Public Use
  Company Number: JP-TEVA-2020-JP-003471J

PATIENT
  Age: 83 Year
  Sex: Female

DRUGS (2)
  1. VERAPAMIL HYDROCHLORIDE TABLET [Suspect]
     Active Substance: VERAPAMIL HYDROCHLORIDE
     Indication: PRODUCT USED FOR UNKNOWN INDICATION
     Dosage: 120 MILLIGRAM DAILY;
     Route: 048
  2. BISONO [Suspect]
     Active Substance: BISOPROLOL
     Route: 065

REACTIONS (2)
  - Renal impairment [Unknown]
  - Bradycardia [Unknown]
